FAERS Safety Report 13189089 (Version 1)
Quarter: 2017Q1

REPORT INFORMATION
  Report Type: Spontaneous
  Country: US (occurrence: US)
  Receive Date: 20170203
  Receipt Date: 20170203
  Transmission Date: 20170428
  Serious: Yes (Hospitalization)
  Sender: FDA-Public Use
  Company Number: None

PATIENT
  Age: 78 Year
  Sex: Male
  Weight: 100 kg

DRUGS (1)
  1. WARFARIN [Suspect]
     Active Substance: WARFARIN
     Dates: start: 20070625, end: 20160821

REACTIONS (4)
  - Gastrointestinal haemorrhage [None]
  - Melaena [None]
  - Haematemesis [None]
  - International normalised ratio increased [None]

NARRATIVE: CASE EVENT DATE: 20160821
